FAERS Safety Report 6234751-3 (Version None)
Quarter: 2009Q2

REPORT INFORMATION
  Report Type: 
  Country: None (occurrence: None)
  Receive Date: 20090604
  Receipt Date: 20090514
  Transmission Date: 20091009
  Serious: Yes (Death, Other)
  Sender: FDA-Public Use
  Company Number: CTU 380932

PATIENT
  Age: 53 Year
  Sex: Male

DRUGS (1)
  1. BONE TISSUE HUMAN [Suspect]

REACTIONS (8)
  - FALL [None]
  - GASTROINTESTINAL DISORDER [None]
  - LOCALISED INFECTION [None]
  - RESPIRATORY FAILURE [None]
  - STAPHYLOCOCCAL SEPSIS [None]
  - SUDDEN CARDIAC DEATH [None]
  - URINARY TRACT INFECTION [None]
  - VOMITING [None]
